FAERS Safety Report 9734713 (Version 1)
Quarter: 2013Q4

REPORT INFORMATION
  Report Type: Spontaneous
  Country: RU (occurrence: RU)
  Receive Date: 20131206
  Receipt Date: 20131206
  Transmission Date: 20140711
  Serious: Yes (Other)
  Sender: FDA-Public Use
  Company Number: RU-JNJFOC-20131200604

PATIENT
  Age: 53 Year
  Sex: 0

DRUGS (2)
  1. CLADRIBINE [Suspect]
     Indication: HAIRY CELL LEUKAEMIA
     Route: 065
     Dates: start: 201203
  2. CLADRIBINE [Suspect]
     Indication: HAIRY CELL LEUKAEMIA
     Dosage: A 7 DAY COURSE
     Route: 065
     Dates: start: 201201

REACTIONS (4)
  - Encephalitis cytomegalovirus [Unknown]
  - Pneumonia [Unknown]
  - Cystitis [Unknown]
  - Drug ineffective [Unknown]
